FAERS Safety Report 4796272-4 (Version None)
Quarter: 2005Q4

REPORT INFORMATION
  Report Type: 
  Country: None (occurrence: None)
  Receive Date: 20051007
  Receipt Date: 20050926
  Transmission Date: 20060501
  Serious: Yes (Other)
  Sender: FDA-Public Use
  Company Number: 2005135435

PATIENT
  Age: 45 Year
  Sex: Female
  Weight: 104.7809 kg

DRUGS (13)
  1. LYRICA [Suspect]
     Indication: FIBROMYALGIA
     Dosage: 150 MG (75 MG, 2 IN 1 D), ORAL
     Route: 048
     Dates: start: 20050914, end: 20050915
  2. NEURONTIN [Concomitant]
  3. OMEGA-3 MARINE TRIGLYCERIDES (OMEGA-2 MARINE TRIGLYCERIDES) [Concomitant]
  4. FUROSEMIDE [Concomitant]
  5. POTASSIUM (POTASSIUM) [Concomitant]
  6. EFFEXOR [Concomitant]
  7. ACIDOPHILLUS (LACTOBACILLUS ACIDOPHILUS) [Concomitant]
  8. HYDROCODONE (HYDROCODONE) [Concomitant]
  9. SPIRONOLACTONE W/HYDROCHLOROTHIAZIDE (HYDROCHLOROTHIAZIDE, SPIRONOLACT [Concomitant]
  10. VITAMIN B COMPLEX (CALCIUM PANTOTHENATE, NICOTINAMIDE, PYRIDOXINE HYDR [Concomitant]
  11. NEXIUM [Concomitant]
  12. CHLORDIAZEPOXIDE W/CLIDINIUM BROMIDE (CHLORDIAZEPOXIDE HYDROCHLORIDE, [Concomitant]
  13. MAXI-10 (VITAMINS NOS) [Concomitant]

REACTIONS (5)
  - DYSPNOEA [None]
  - GENERALISED OEDEMA [None]
  - MIGRAINE [None]
  - PHOTOPHOBIA [None]
  - RASH [None]
